FAERS Safety Report 8067088-0 (Version None)
Quarter: 2012Q1

REPORT INFORMATION
  Report Type: 
  Country: None (occurrence: None)
  Receive Date: 20120124
  Receipt Date: 20120117
  Transmission Date: 20120608
  Serious: Yes (Hospitalization, Other)
  Sender: FDA-Public Use
  Company Number: JP-PFIZER INC-2011112000

PATIENT
  Age: 12 Year
  Sex: Male
  Weight: 28.3 kg

DRUGS (9)
  1. SOMATROPIN [Suspect]
     Indication: DWARFISM
     Dosage: 5.4 MG A WEEK, 6 INJECTIONS PER WEEK
     Route: 058
     Dates: start: 20100223, end: 20100322
  2. SOMATROPIN [Suspect]
     Indication: SMALL FOR DATES BABY
     Dosage: 4.8 MG A WEEK, 6 INJECTIONS PER WEEK
     Route: 058
     Dates: start: 20090717, end: 20100222
  3. SOMATROPIN [Suspect]
     Dosage: 12 MG A WEEK, 6 INJECTIONS PER WEEK
     Route: 058
     Dates: start: 20110111
  4. HOKUNALIN [Concomitant]
     Indication: BRONCHITIS
     Dosage: UNK
     Route: 058
     Dates: start: 20110510, end: 20110602
  5. SINGULAIR [Concomitant]
     Indication: ASTHMA
     Dosage: UNK
     Route: 048
     Dates: start: 20110510, end: 20110602
  6. SOMATROPIN [Suspect]
     Dosage: 11.4 MG A WEEK, 6 INJECTIONS PER WEEK
     Route: 058
     Dates: start: 20101026, end: 20110110
  7. MUCODYNE [Concomitant]
     Indication: BRONCHITIS
     Dosage: UNK
     Route: 048
     Dates: start: 20110510, end: 20110602
  8. SOMATROPIN [Suspect]
     Dosage: 10.2 MG A WEEK, 6 INJECTIONS PER WEEK
     Route: 058
     Dates: start: 20100323, end: 20101025
  9. SOMATROPIN [Suspect]
     Dosage: UNK
     Route: 058
     Dates: start: 20110915

REACTIONS (2)
  - GLOMERULONEPHRITIS MEMBRANOUS [None]
  - BRONCHITIS [None]
